FAERS Safety Report 7689311-4 (Version None)
Quarter: 2011Q3

REPORT INFORMATION
  Report Type: 
  Country: None (occurrence: None)
  Receive Date: 20110817
  Receipt Date: 20110808
  Transmission Date: 20111222
  Serious: Yes (Other)
  Sender: FDA-Public Use
  Company Number: US-BAYER-201041331NA

PATIENT
  Age: 24 Year
  Sex: Female
  Weight: 65.76 kg

DRUGS (9)
  1. ALBUTEROL SULFATE AUTOHALER [Concomitant]
  2. YASMIN [Suspect]
     Indication: PRODUCT USED FOR UNKNOWN INDICATION
     Dosage: UNK
     Dates: start: 20000101, end: 20110101
  3. YAZ [Suspect]
     Indication: PRODUCT USED FOR UNKNOWN INDICATION
  4. FLEXERIL [Concomitant]
     Dosage: 5 MG, BID
     Dates: start: 20061016
  5. ALLEGRA [Concomitant]
     Dosage: 180 MG, QD
  6. ADVAIR DISKUS 100/50 [Concomitant]
  7. FLUZONE [Concomitant]
     Dosage: 0.5 ML, UNK
     Route: 030
     Dates: start: 20061024
  8. DROSPIRENONE AND ETHINYL ESTRADIOL [Suspect]
     Indication: PRODUCT USED FOR UNKNOWN INDICATION
     Dosage: UNK
     Dates: start: 20000101, end: 20110101
  9. ADVIL LIQUI-GELS [Concomitant]

REACTIONS (3)
  - GALLBLADDER DISORDER [None]
  - INJURY [None]
  - CHOLECYSTITIS CHRONIC [None]
